FAERS Safety Report 19368172 (Version 1)
Quarter: 2021Q2

REPORT INFORMATION
  Report Type: Spontaneous
  Country: US (occurrence: US)
  Receive Date: 20210602
  Receipt Date: 20210602
  Transmission Date: 20210717
  Serious: No
  Sender: FDA-Public Use
  Company Number: US-ROCHE-2610238

PATIENT
  Age: 43 Year
  Sex: Male
  Weight: 44.95 kg

DRUGS (1)
  1. OCREVUS [Suspect]
     Active Substance: OCRELIZUMAB
     Indication: PRIMARY PROGRESSIVE MULTIPLE SCLEROSIS
     Dosage: FIRST DOSE: 300 MG
     Route: 042
     Dates: start: 20200526

REACTIONS (1)
  - Hyperaesthesia [Unknown]

NARRATIVE: CASE EVENT DATE: 20200526
